FAERS Safety Report 9893507 (Version 2)
Quarter: 2014Q2

REPORT INFORMATION
  Report Type: Report from Study
  Country: DK (occurrence: DK)
  Receive Date: 20140213
  Receipt Date: 20140415
  Transmission Date: 20141212
  Serious: Yes (Other)
  Sender: FDA-Public Use
  Company Number: PHHY2014DK017222

PATIENT
  Age: 61 Year
  Sex: Male

DRUGS (1)
  1. AMN107 [Suspect]

REACTIONS (3)
  - Angina pectoris [Unknown]
  - Chest discomfort [Unknown]
  - Pain in extremity [Unknown]
